FAERS Safety Report 18414535 (Version 3)
Quarter: 2024Q3

REPORT INFORMATION
  Report Type: Spontaneous
  Country: CN (occurrence: CN)
  Receive Date: 20201022
  Receipt Date: 20240718
  Transmission Date: 20241017
  Serious: Yes (Other)
  Sender: PFIZER
  Company Number: CN-PFIZER INC-2020403660

PATIENT
  Age: 74 Year
  Sex: Male
  Weight: 58 kg

DRUGS (3)
  1. CEFOPERAZONE SODIUM\SULBACTAM SODIUM [Suspect]
     Active Substance: CEFOPERAZONE SODIUM\SULBACTAM SODIUM
     Indication: Urinary tract infection
     Dosage: 3 G, 2X/DAY EVERY 12 HOURS
     Route: 041
     Dates: start: 20201006, end: 20201015
  2. LINEZOLID [Suspect]
     Active Substance: LINEZOLID
     Indication: Urinary tract infection
     Dosage: 600 MG, 2X/DAY EVERY 12 HOURS
     Route: 041
     Dates: start: 20201010, end: 20201014
  3. SODIUM CHLORIDE [Concomitant]
     Active Substance: SODIUM CHLORIDE
     Dosage: 100 ML, 2X/DAY EVERY 12 HOURS
     Route: 041
     Dates: start: 20201006, end: 20201015

REACTIONS (3)
  - Epilepsy [Recovering/Resolving]
  - Nausea [Unknown]
  - Vomiting [Unknown]

NARRATIVE: CASE EVENT DATE: 20201014
